FAERS Safety Report 6250031-4 (Version None)
Quarter: 2009Q2

REPORT INFORMATION
  Report Type: 
  Country: None (occurrence: None)
  Receive Date: 20090629
  Receipt Date: 20090619
  Transmission Date: 20091009
  Serious: Yes (Hospitalization)
  Sender: FDA-Public Use
  Company Number: PHEH2009US06510

PATIENT
  Sex: Female

DRUGS (9)
  1. GLEEVEC [Suspect]
     Indication: CHRONIC MYELOID LEUKAEMIA
     Dosage: 100 MG, UNK
     Dates: start: 20040101
  2. SPRYCEL [Suspect]
     Dosage: 100 MG, UNK
  3. ASPIRIN [Concomitant]
  4. FUROSEMIDE INTENSOL [Concomitant]
  5. LIPITOR [Concomitant]
  6. LISINOPRIL [Concomitant]
  7. CARVEDILOL [Concomitant]
  8. VITAMINS [Concomitant]
  9. MINERALS NOS [Concomitant]

REACTIONS (8)
  - ALTERED STATE OF CONSCIOUSNESS [None]
  - AMNESIA [None]
  - CARDIAC DISORDER [None]
  - CEREBRAL ARTERY THROMBOSIS [None]
  - DYSPNOEA [None]
  - HEADACHE [None]
  - PIGMENTATION DISORDER [None]
  - SKIN DISCOLOURATION [None]
